FAERS Safety Report 24776739 (Version 1)
Quarter: 2024Q4

REPORT INFORMATION
  Report Type: Spontaneous
  Country: JP (occurrence: JP)
  Receive Date: 20241226
  Receipt Date: 20241226
  Transmission Date: 20250115
  Serious: Yes (Life-Threatening, Hospitalization, Other)
  Sender: ASTELLAS
  Company Number: JP-ASTELLAS-2024-AER-026614

PATIENT
  Age: 6 Decade
  Sex: Male

DRUGS (3)
  1. TACROLIMUS [Suspect]
     Active Substance: TACROLIMUS
     Indication: Allogenic stem cell transplantation
     Route: 048
  2. TACROLIMUS [Suspect]
     Active Substance: TACROLIMUS
     Route: 048
  3. NIRMATRELVIR\RITONAVIR [Interacting]
     Active Substance: NIRMATRELVIR\RITONAVIR
     Indication: COVID-19
     Dosage: 150 MG/100 MG TWICE DAILY FOR 5 DAYS
     Route: 065

REACTIONS (6)
  - Metabolic acidosis [Unknown]
  - Lung opacity [Unknown]
  - Immunosuppressant drug level increased [Unknown]
  - Acute kidney injury [Recovering/Resolving]
  - COVID-19 [Unknown]
  - Drug interaction [Unknown]
